FAERS Safety Report 13102457 (Version 1)
Quarter: 2017Q1

REPORT INFORMATION
  Report Type: Spontaneous
  Country: US (occurrence: US)
  Receive Date: 20170110
  Receipt Date: 20170110
  Transmission Date: 20170428
  Serious: Yes (Death, Other)
  Sender: FDA-Public Use
  Company Number: US-ASTRAZENECA-2017SE01142

PATIENT
  Age: 577 Month
  Sex: Female
  Weight: 63.5 kg

DRUGS (7)
  1. ANTI NAUSEA MEDICATION/CONSTIPATION/PAIN [Concomitant]
     Indication: NAUSEA
  2. IBRANCE [Suspect]
     Active Substance: PALBOCICLIB
     Indication: BREAST CANCER
     Route: 065
  3. ARIMIDEX [Suspect]
     Active Substance: ANASTROZOLE
     Indication: TRIPLE NEGATIVE BREAST CANCER
     Route: 048
     Dates: start: 2015
  4. ANTI NAUSEA MEDICATION/CONSTIPATION/PAIN [Concomitant]
     Indication: CONSTIPATION
  5. ANTI NAUSEA MEDICATION/CONSTIPATION/PAIN [Concomitant]
     Indication: PAIN
  6. HYDROCODONE [Concomitant]
     Active Substance: HYDROCODONE
     Indication: PAIN
  7. TRAMADOL. [Concomitant]
     Active Substance: TRAMADOL
     Indication: PAIN

REACTIONS (4)
  - Tumour marker increased [Unknown]
  - Metastases to liver [Fatal]
  - Metastases to bone [Fatal]
  - Hepatic failure [Fatal]

NARRATIVE: CASE EVENT DATE: 201607
